FAERS Safety Report 9306355 (Version 4)
Quarter: 2013Q4

REPORT INFORMATION
  Report Type: Spontaneous
  Country: JP (occurrence: JP)
  Receive Date: 20130523
  Receipt Date: 20131015
  Transmission Date: 20140711
  Serious: Yes (Hospitalization, Other)
  Sender: FDA-Public Use
  Company Number: JP-ASTRAZENECA-2013SE34700

PATIENT
  Age: 26843 Day
  Sex: Male
  Weight: 71 kg

DRUGS (5)
  1. ZOLADEX LA [Suspect]
     Indication: PROSTATE CANCER
     Route: 058
     Dates: start: 20130130
  2. ZOLADEX LA [Suspect]
     Indication: PROSTATE CANCER
     Dosage: 10.8 MG AS SECOND DOSE WAS GIVEN.
     Route: 058
     Dates: start: 20130502, end: 20130502
  3. CASODEX [Concomitant]
     Indication: PROSTATE CANCER
     Route: 048
     Dates: start: 20130130
  4. CALONAL [Concomitant]
     Indication: NASOPHARYNGITIS
     Route: 048
     Dates: start: 20130502, end: 20130505
  5. PL [Concomitant]
     Indication: NASOPHARYNGITIS
     Route: 048
     Dates: start: 20130502, end: 20130505

REACTIONS (2)
  - Stevens-Johnson syndrome [Recovering/Resolving]
  - Vomiting [Recovering/Resolving]
